FAERS Safety Report 6165649-7 (Version None)
Quarter: 2009Q2

REPORT INFORMATION
  Report Type: 
  Country: None (occurrence: None)
  Receive Date: 20090423
  Receipt Date: 20090414
  Transmission Date: 20091009
  Serious: Yes (Life-Threatening)
  Sender: FDA-Public Use
  Company Number: JP-EISAI INC.-E2020-04442-CLI-JP

PATIENT
  Sex: Female
  Weight: 68.3 kg

DRUGS (8)
  1. ARICEPT [Suspect]
     Route: 048
     Dates: start: 20050928, end: 20051005
  2. ARICEPT [Suspect]
     Route: 048
     Dates: start: 20051006, end: 20080330
  3. ARICEPT [Suspect]
     Route: 048
     Dates: start: 20080331, end: 20090117
  4. ARICEPT [Suspect]
     Route: 048
     Dates: start: 20090204, end: 20090217
  5. ARICEPT [Suspect]
     Route: 048
     Dates: start: 20090218, end: 20090303
  6. ARICEPT [Suspect]
     Route: 048
     Dates: start: 20090304
  7. LASIX [Concomitant]
  8. SPIRONOLACTONE [Concomitant]

REACTIONS (2)
  - AGGRESSION [None]
  - PORIOMANIA [None]
